FAERS Safety Report 10105755 (Version 2)
Quarter: 2014Q2

REPORT INFORMATION
  Report Type: Other
  Country: US (occurrence: US)
  Receive Date: 20140424
  Receipt Date: 20140612
  Transmission Date: 20141212
  Serious: Yes (Hospitalization, Other)
  Sender: FDA-Public Use
  Company Number: US-GSKPPD-2014GSK000814

PATIENT
  Age: 39 Year
  Sex: Male

DRUGS (8)
  1. AVANDIA [Suspect]
     Indication: DIABETES MELLITUS
     Route: 048
     Dates: start: 2002, end: 2006
  2. COUMADIN [Concomitant]
     Route: 048
     Dates: start: 200205
  3. ASPIRIN [Concomitant]
     Route: 048
     Dates: start: 200205
  4. PLAVIX [Concomitant]
     Route: 048
     Dates: start: 200205
  5. METOPROLOL SUCCINATE [Concomitant]
     Route: 048
     Dates: start: 200205
  6. ZOCOR [Concomitant]
     Route: 048
     Dates: start: 200205
  7. LOVENOX [Concomitant]
     Route: 058
     Dates: start: 200205
  8. VASOTEC [Concomitant]
     Route: 048
     Dates: start: 200205

REACTIONS (1)
  - Myocardial infarction [Recovered/Resolved]
